FAERS Safety Report 10432727 (Version 2)
Quarter: 2015Q1

REPORT INFORMATION
  Report Type: Spontaneous
  Country: US (occurrence: US)
  Receive Date: 20140905
  Receipt Date: 20150318
  Transmission Date: 20150720
  Serious: No
  Sender: FDA-Public Use
  Company Number: US-009507513-1409USA000918

PATIENT
  Sex: Male

DRUGS (1)
  1. PROPECIA [Suspect]
     Active Substance: FINASTERIDE
     Indication: ALOPECIA
     Dosage: 1 MG, QD
     Route: 048
     Dates: start: 20090713, end: 20100825

REACTIONS (6)
  - Infertility [Unknown]
  - Semen analysis abnormal [Unknown]
  - Sexual dysfunction [Not Recovered/Not Resolved]
  - Spermatozoa progressive motility decreased [Unknown]
  - Hair transplant [Unknown]
  - Sperm concentration decreased [Unknown]

NARRATIVE: CASE EVENT DATE: 2010
